FAERS Safety Report 7681892-X (Version None)
Quarter: 2011Q3

REPORT INFORMATION
  Report Type: 
  Country: None (occurrence: None)
  Receive Date: 20110815
  Receipt Date: 20110810
  Transmission Date: 20111222
  Serious: Yes (Hospitalization)
  Sender: FDA-Public Use
  Company Number: US-BIOGENIDEC-2011BI011795

PATIENT
  Age: 30 Year
  Sex: Male

DRUGS (9)
  1. ENTOCORT EC [Concomitant]
     Indication: CROHN'S DISEASE
     Route: 048
  2. COLESTIPOL HYDROCHLORIDE [Concomitant]
     Route: 048
  3. ANTIBIOTICS [Concomitant]
  4. TYSABRI [Suspect]
     Indication: CROHN'S DISEASE
     Route: 042
     Dates: start: 20080515, end: 20110309
  5. HYDROCORTISONE [Concomitant]
  6. PENTASA [Concomitant]
     Route: 048
  7. XIFAXAN [Concomitant]
     Route: 048
  8. CIPROFLOXACIN [Concomitant]
  9. LOPERAMIDE HYDROCHLORIDE [Concomitant]

REACTIONS (1)
  - PROGRESSIVE MULTIFOCAL LEUKOENCEPHALOPATHY [None]
